FAERS Safety Report 6637544-8 (Version None)
Quarter: 2010Q1

REPORT INFORMATION
  Report Type: 
  Country: None (occurrence: None)
  Receive Date: 20100317
  Receipt Date: 20100304
  Transmission Date: 20100710
  Serious: Yes (Hospitalization)
  Sender: FDA-Public Use
  Company Number: US-JNJFOC-20100109157

PATIENT
  Sex: Male
  Weight: 140.62 kg

DRUGS (4)
  1. TYLENOL [Suspect]
     Route: 048
  2. TYLENOL [Suspect]
     Indication: PAIN
     Dosage: 650 MG IN AM AND 650 MG IN PM, OCCASIONALLY 3 CAPLETS (650 MG)
     Route: 048
  3. COUMADIN [Suspect]
     Indication: ATRIAL FIBRILLATION
  4. CIPROFLOXACIN [Suspect]
     Indication: DRUG USE FOR UNKNOWN INDICATION

REACTIONS (2)
  - PRODUCT QUALITY ISSUE [None]
  - RECTAL HAEMORRHAGE [None]
